FAERS Safety Report 10516461 (Version 1)
Quarter: 2014Q4

REPORT INFORMATION
  Report Type: Spontaneous
  Country: US (occurrence: None)
  Receive Date: 20141010
  Receipt Date: 20141010
  Transmission Date: 20150528
  Serious: Yes (Disabling)
  Sender: FDA-Public Use
  Company Number: None

PATIENT
  Age: 41 Year
  Sex: Female
  Weight: 77.11 kg

DRUGS (2)
  1. BUPROPION SR 150 MG SUN PHARMA [Suspect]
     Active Substance: BUPROPION
     Indication: ANXIETY
     Dosage: 1 PILL TWICE DAILY TAKEN BY MOUTH
     Route: 048
     Dates: start: 20141005, end: 20141009
  2. BUPROPION SR 150 MG SUN PHARMA [Suspect]
     Active Substance: BUPROPION
     Indication: DEPRESSION
     Dosage: 1 PILL TWICE DAILY TAKEN BY MOUTH
     Route: 048
     Dates: start: 20141005, end: 20141009

REACTIONS (11)
  - Headache [None]
  - Activities of daily living impaired [None]
  - Abdominal pain upper [None]
  - Product quality issue [None]
  - Crying [None]
  - Paranoia [None]
  - Impatience [None]
  - Fatigue [None]
  - Agitation [None]
  - Mood swings [None]
  - Nausea [None]

NARRATIVE: CASE EVENT DATE: 20141005
